FAERS Safety Report 8054798-4 (Version None)
Quarter: 2012Q1

REPORT INFORMATION
  Report Type: 
  Country: None (occurrence: None)
  Receive Date: 20120119
  Receipt Date: 20120109
  Transmission Date: 20120608
  Serious: Yes (Other)
  Sender: FDA-Public Use
  Company Number: US-BAYER-2010-002189

PATIENT
  Age: 21 Year
  Sex: Female
  Weight: 49.887 kg

DRUGS (2)
  1. YASMIN [Suspect]
     Dosage: UNK
     Dates: start: 20030101
  2. NUVARING [Concomitant]
     Dosage: UNK
     Dates: start: 20060101, end: 20070101

REACTIONS (3)
  - GALLBLADDER INJURY [None]
  - CHOLECYSTITIS [None]
  - GASTRIC DISORDER [None]
